FAERS Safety Report 4702623-9 (Version None)
Quarter: 2005Q2

REPORT INFORMATION
  Report Type: 
  Country: None (occurrence: None)
  Receive Date: 20050629
  Receipt Date: 19990928
  Transmission Date: 20051028
  Serious: No
  Sender: FDA-Public Use
  Company Number: US-GLAXOSMITHKLINE-A0102274A

PATIENT
  Age: 45 Year
  Sex: Female

DRUGS (1)
  1. ZYBAN [Suspect]
     Dosage: 150MG TWICE PER DAY
     Route: 048
     Dates: start: 19990906, end: 19990927

REACTIONS (2)
  - HYPERSENSITIVITY [None]
  - RASH PRURITIC [None]
